FAERS Safety Report 10907221 (Version 3)
Quarter: 2015Q3

REPORT INFORMATION
  Report Type: Spontaneous
  Country: US (occurrence: US)
  Receive Date: 20150312
  Receipt Date: 20150904
  Transmission Date: 20151125
  Serious: Yes (Other)
  Sender: FDA-Public Use
  Company Number: US-AMGEN-USASL2015021017

PATIENT
  Age: 25 Year
  Sex: Female

DRUGS (2)
  1. ENBREL [Suspect]
     Active Substance: ETANERCEPT
     Indication: JUVENILE IDIOPATHIC ARTHRITIS
     Dosage: 50 MG, QWK
     Route: 058
     Dates: start: 2009
  2. ENBREL [Suspect]
     Active Substance: ETANERCEPT
     Indication: RHEUMATOID ARTHRITIS

REACTIONS (11)
  - Injection site reaction [Unknown]
  - Headache [Unknown]
  - Insomnia [Unknown]
  - Contusion [Unknown]
  - Activities of daily living impaired [Unknown]
  - Injection site bruising [Unknown]
  - Rheumatoid arthritis [Unknown]
  - Decreased activity [Unknown]
  - Injection site pain [Unknown]
  - Visual impairment [Unknown]
  - Arthritis [Unknown]
